FAERS Safety Report 10034784 (Version 1)
Quarter: 2014Q1

REPORT INFORMATION
  Report Type: Report from Study
  Country: US (occurrence: US)
  Receive Date: 20140325
  Receipt Date: 20140325
  Transmission Date: 20141002
  Serious: Yes (Hospitalization)
  Sender: FDA-Public Use
  Company Number: US-SA-2014SA033996

PATIENT
  Age: 54 Year
  Sex: Female

DRUGS (4)
  1. CLOPIDOGREL BISULFATE [Suspect]
     Indication: CORONARY ARTERY DISEASE
     Route: 065
     Dates: start: 20110408
  2. ASPIRIN [Suspect]
     Indication: CORONARY ARTERY DISEASE
     Route: 065
     Dates: start: 20110408
  3. CRESTOR [Concomitant]
  4. LOPRESSOR [Concomitant]

REACTIONS (1)
  - Dyspnoea exertional [Recovered/Resolved]
